FAERS Safety Report 8859397 (Version 2)
Quarter: 2013Q1

REPORT INFORMATION
  Report Type: Spontaneous
  Country: US (occurrence: US)
  Receive Date: 20121024
  Receipt Date: 20130305
  Transmission Date: 20140127
  Serious: Yes (Hospitalization, Disabling, Other)
  Sender: FDA-Public Use
  Company Number: US-BAYER-2012-111264

PATIENT
  Age: 46 Year
  Sex: Female
  Weight: 65.76 kg

DRUGS (4)
  1. YASMIN [Suspect]
     Indication: PREMENSTRUAL SYNDROME
     Dosage: UNK
     Dates: start: 2005, end: 2007
  2. PREDNISONE [Concomitant]
     Dosage: UNK
     Dates: start: 2003
  3. ATENOLOL [Concomitant]
     Indication: BLOOD PRESSURE ABNORMAL
  4. UNCODEABLE ^UNCLASSIFIABLE^ [Concomitant]

REACTIONS (7)
  - Gallbladder disorder [None]
  - Cholecystitis chronic [None]
  - Cerebrovascular accident [None]
  - Off label use [None]
  - Injury [None]
  - Pain [None]
  - Deformity [None]
